FAERS Safety Report 9289482 (Version 1)
Quarter: 2013Q2

REPORT INFORMATION
  Report Type: Report from Study
  Country: US (occurrence: US)
  Receive Date: 20130514
  Receipt Date: 20130514
  Transmission Date: 20140414
  Serious: Yes (Other)
  Sender: FDA-Public Use
  Company Number: US-TEVA-404360USA

PATIENT
  Age: 53 Year
  Sex: Male
  Weight: 81.72 kg

DRUGS (13)
  1. NUVIGIL [Suspect]
     Dates: start: 201212, end: 201212
  2. NIASPAN [Interacting]
     Indication: BLOOD TRIGLYCERIDES INCREASED
     Dosage: 500 MILLIGRAM DAILY;
     Dates: start: 201212
  3. ATORVASTATIN [Concomitant]
  4. DIOVAN HCT [Concomitant]
  5. METFORMIN [Concomitant]
  6. VITAMIN D2 [Concomitant]
  7. TRICOR [Concomitant]
  8. BRILINTA [Concomitant]
  9. MONTELUKAST [Concomitant]
  10. BABY ASA [Concomitant]
  11. VICTOZA [Concomitant]
  12. BYSTOLIC [Concomitant]
  13. VITAMIN B12 [Concomitant]

REACTIONS (3)
  - Loss of consciousness [Recovered/Resolved]
  - Fall [Recovered/Resolved]
  - Drug interaction [Unknown]
